FAERS Safety Report 6065716-2 (Version None)
Quarter: 2009Q1

REPORT INFORMATION
  Report Type: 
  Country: None (occurrence: None)
  Receive Date: 20090202
  Receipt Date: 20080415
  Transmission Date: 20090719
  Serious: Yes (Life-Threatening, Hospitalization)
  Sender: FDA-Public Use
  Company Number: 2008029374

PATIENT
  Sex: Female

DRUGS (1)
  1. FRAGMIN [Suspect]
     Indication: HIP ARTHROPLASTY
     Dosage: 5000 IU, SUBCUTANEOUS
     Route: 058
     Dates: start: 20080128, end: 20080222

REACTIONS (1)
  - PULMONARY EMBOLISM [None]
